FAERS Safety Report 5671375-0 (Version None)
Quarter: 2008Q1

REPORT INFORMATION
  Report Type: 
  Country: None (occurrence: None)
  Receive Date: 20080318
  Receipt Date: 20080307
  Transmission Date: 20080703
  Serious: Yes (Death)
  Sender: FDA-Public Use
  Company Number: US-PFIZER INC-2008021392

PATIENT
  Sex: Female
  Weight: 7 kg

DRUGS (1)
  1. GENOTROPIN [Suspect]
     Indication: BODY HEIGHT BELOW NORMAL
     Route: 058
     Dates: start: 20061026, end: 20070105

REACTIONS (2)
  - BRAIN NEOPLASM MALIGNANT [None]
  - RESPIRATORY ARREST [None]
